FAERS Safety Report 10244537 (Version 1)
Quarter: 2014Q2

REPORT INFORMATION
  Report Type: Spontaneous
  Country: US (occurrence: US)
  Receive Date: 20140618
  Receipt Date: 20140618
  Transmission Date: 20141212
  Serious: Yes (Other)
  Sender: FDA-Public Use
  Company Number: US-TEVA-488272USA

PATIENT
  Age: 56 Year
  Sex: Female

DRUGS (2)
  1. COPAXONE 40MG [Suspect]
     Indication: MULTIPLE SCLEROSIS
  2. COPAXONE 40MG [Suspect]
     Dates: start: 20110627

REACTIONS (4)
  - Multiple sclerosis relapse [Unknown]
  - Confusional state [Unknown]
  - Fatigue [Unknown]
  - Gait disturbance [Unknown]
